FAERS Safety Report 6824321-8 (Version None)
Quarter: 2010Q3

REPORT INFORMATION
  Report Type: 
  Country: None (occurrence: None)
  Receive Date: 20100708
  Receipt Date: 20061024
  Transmission Date: 20110219
  Serious: No
  Sender: FDA-Public Use
  Company Number: US-PFIZER INC-2006128035

PATIENT
  Sex: Female
  Weight: 49.9 kg

DRUGS (8)
  1. CHANTIX [Suspect]
     Indication: SMOKING CESSATION THERAPY
     Dates: start: 20061011, end: 20061014
  2. METOPROLOL [Concomitant]
  3. HYDROCHLOROTHIAZIDE [Concomitant]
  4. LISINOPRIL [Concomitant]
  5. FAMOTIDINE [Concomitant]
  6. ESTROPIPATE [Concomitant]
  7. PROMETHAZINE [Concomitant]
  8. ALBUTEROL [Concomitant]

REACTIONS (2)
  - MALAISE [None]
  - NAUSEA [None]
